FAERS Safety Report 9904116 (Version 1)
Quarter: 2014Q1

REPORT INFORMATION
  Report Type: Spontaneous
  Country: US (occurrence: US)
  Receive Date: 20140218
  Receipt Date: 20140218
  Transmission Date: 20141002
  Serious: No
  Sender: FDA-Public Use
  Company Number: US-BIOGENIDEC-2014BI013251

PATIENT
  Sex: Male

DRUGS (23)
  1. TECFIDERA [Suspect]
     Indication: MULTIPLE SCLEROSIS
     Route: 048
     Dates: start: 201307
  2. TECFIDERA [Suspect]
     Indication: MULTIPLE SCLEROSIS
  3. DEPO-TESTOSTERONE [Concomitant]
  4. LITHIUM CARBONATE [Concomitant]
  5. VOLTAREN [Concomitant]
  6. CARBAMAZEPINE [Concomitant]
  7. NASONEX [Concomitant]
  8. OXYBUTYNIN [Concomitant]
  9. MELOXICAM [Concomitant]
  10. CICLOPIROX [Concomitant]
  11. BACLOFEN [Concomitant]
  12. NEXIUM [Concomitant]
  13. BETA-CAROTENE [Concomitant]
  14. CRANBERRY [Concomitant]
  15. ZINC [Concomitant]
  16. VITAMIN D [Concomitant]
  17. CALCIUM [Concomitant]
  18. MAGNESIUM [Concomitant]
  19. GLUCOSAMINE [Concomitant]
  20. NORCO [Concomitant]
  21. FISH OIL [Concomitant]
  22. VITAMIN C [Concomitant]
  23. LEVOXYL [Concomitant]

REACTIONS (2)
  - Fatigue [Unknown]
  - Myalgia [Unknown]
